FAERS Safety Report 13237179 (Version 1)
Quarter: 2017Q1

REPORT INFORMATION
  Report Type: Spontaneous
  Country: US (occurrence: US)
  Receive Date: 20170215
  Receipt Date: 20170215
  Transmission Date: 20170428
  Serious: No
  Sender: FDA-Public Use
  Company Number: GXBR2017US000472

PATIENT
  Sex: Female

DRUGS (1)
  1. AZITHROMYCIN 500 MG [Suspect]
     Active Substance: AZITHROMYCIN ANHYDROUS
     Indication: PRODUCT USED FOR UNKNOWN INDICATION
     Dosage: 500 MG, UNK
     Route: 048

REACTIONS (15)
  - Headache [Unknown]
  - Contusion [Unknown]
  - Skin hypertrophy [Unknown]
  - Blister [Unknown]
  - Rash pruritic [Unknown]
  - Dizziness [Unknown]
  - Activities of daily living impaired [Unknown]
  - Skin fissures [Unknown]
  - Impaired quality of life [Unknown]
  - Nervousness [Unknown]
  - Skin exfoliation [Unknown]
  - Ocular icterus [Unknown]
  - Skin haemorrhage [Unknown]
  - Insomnia [Unknown]
  - Nail discolouration [Unknown]
